FAERS Safety Report 7386571-4 (Version None)
Quarter: 2011Q1

REPORT INFORMATION
  Report Type: 
  Country: None (occurrence: None)
  Receive Date: 20110331
  Receipt Date: 20110324
  Transmission Date: 20110831
  Serious: Yes (Death)
  Sender: FDA-Public Use
  Company Number: IT-GENZYME-FLUD-1000908

PATIENT
  Age: 72 Year
  Sex: Male

DRUGS (10)
  1. TRIMETHOPRIM + SULFAMETHOXAZOLE [Concomitant]
     Indication: ANTIFUNGAL PROPHYLAXIS
     Dosage: BID TWICE WEEKLY
     Route: 048
  2. CYCLOPHOSPHAMIDE [Suspect]
     Indication: NON-HODGKIN'S LYMPHOMA
     Dosage: 250 MG/M2, QD FOR 3 DAYS, EVERY 28 DAYS
     Route: 042
  3. FLUCONAZOLE [Concomitant]
     Indication: ANTIFUNGAL PROPHYLAXIS
     Dosage: 200 MG, QD
  4. FLUDARA [Suspect]
     Dosage: 25 MG/M2, FOR 3 DAYS, EVERY 28 DAYS
     Route: 042
  5. FLUDARA [Suspect]
     Indication: NON-HODGKIN'S LYMPHOMA
     Dosage: 25 MG/M2, FOR 3 DAYS, EVERY 28 DAYS
     Route: 042
  6. FLUDARA [Suspect]
     Dosage: 25 MG/M2, FOR 3 DAYS, EVERY 28 DAYS
     Route: 042
  7. CYCLOPHOSPHAMIDE [Suspect]
     Dosage: 250 MG/M2, QD FOR 3 DAYS, EVERY 28 DAYS
     Route: 042
  8. CYCLOPHOSPHAMIDE [Suspect]
     Dosage: 250 MG/M2, QD FOR 3 DAYS, EVERY 28 DAYS
     Route: 042
  9. FLUDARA [Suspect]
     Dosage: 25 MG/M2, FOR 3 DAYS, EVERY 28 DAYS
     Route: 042
  10. CYCLOPHOSPHAMIDE [Suspect]
     Dosage: 250 MG/M2, QD FOR 3 DAYS, EVERY 28 DAYS
     Route: 042

REACTIONS (1)
  - MYELODYSPLASTIC SYNDROME [None]
